FAERS Safety Report 23505968 (Version 1)
Quarter: 2024Q1

REPORT INFORMATION
  Report Type: Spontaneous
  Country: US (occurrence: None)
  Receive Date: 20240208
  Receipt Date: 20240208
  Transmission Date: 20240410
  Serious: Yes (unspecified)
  Sender: FDA-Public Use
  Company Number: None

PATIENT
  Age: 45 Year
  Sex: Female
  Weight: 126.9 kg

DRUGS (1)
  1. WEGOVY [Suspect]
     Active Substance: SEMAGLUTIDE
     Dates: start: 20220118, end: 20231025

REACTIONS (3)
  - Gastrooesophageal reflux disease [None]
  - Cough [None]
  - Rectal tenesmus [None]

NARRATIVE: CASE EVENT DATE: 20231120
